FAERS Safety Report 6231073-1 (Version None)
Quarter: 2009Q2

REPORT INFORMATION
  Report Type: 
  Country: None (occurrence: None)
  Receive Date: 20090616
  Receipt Date: 20080222
  Transmission Date: 20091009
  Serious: Yes (Death, Other)
  Sender: FDA-Public Use
  Company Number: US-ASTRAZENECA-2007UW16050

PATIENT
  Age: 11105 Day
  Sex: Female

DRUGS (12)
  1. SEROQUEL [Suspect]
     Indication: SCHIZOPHRENIA
     Route: 048
     Dates: start: 19980101, end: 20020517
  2. SEROQUEL [Suspect]
     Dosage: 200 - 400 MG DAILY
     Route: 048
     Dates: start: 20011220
  3. ZYPREXA [Concomitant]
     Dosage: STRENGTH - 5 MG, 10 MG, 15 MG, 20 MG, DOSE - 5  - 20 MG DAILY
     Route: 048
     Dates: start: 19961118
  4. RISPERDAL [Concomitant]
  5. DEPAKOTE [Concomitant]
     Dosage: 250 - 2000 MG DAILY
     Route: 048
     Dates: start: 19970604
  6. REMERON [Concomitant]
     Route: 048
     Dates: start: 20020510
  7. PROLIXIN [Concomitant]
     Route: 048
     Dates: start: 20020510
  8. ELAVIL [Concomitant]
     Dosage: STRENGTH - 25MG, 75 MG, 100 MG, DOSE - 25 - 100 MG AT NIGHT
     Route: 048
     Dates: start: 19880503
  9. XANAX [Concomitant]
     Route: 048
     Dates: start: 19980729
  10. TRAZODONE HCL [Concomitant]
     Route: 048
     Dates: start: 20010817
  11. SYNTHROID [Concomitant]
     Route: 048
     Dates: start: 19971218
  12. FLURAZEPAM [Concomitant]
     Route: 048
     Dates: start: 20010101

REACTIONS (3)
  - DEATH [None]
  - PANCREATITIS ACUTE [None]
  - TYPE 2 DIABETES MELLITUS [None]
